FAERS Safety Report 10585767 (Version 1)
Quarter: 2014Q4

REPORT INFORMATION
  Report Type: Spontaneous
  Country: DK (occurrence: IE)
  Receive Date: 20141114
  Receipt Date: 20141114
  Transmission Date: 20150529
  Serious: Yes (Death, Life-Threatening)
  Sender: FDA-Public Use
  Company Number: IE-FRI-1000072258

PATIENT
  Age: 89 Year
  Sex: Female
  Weight: 45 kg

DRUGS (11)
  1. ATORVASTATIN [Concomitant]
     Active Substance: ATORVASTATIN
     Indication: HYPERCHOLESTEROLAEMIA
     Dosage: 10 MG
     Dates: start: 20090108, end: 20140815
  2. XARELTO [Suspect]
     Active Substance: RIVAROXABAN
     Indication: ATRIAL FIBRILLATION
     Dosage: 15 MG
     Route: 048
     Dates: start: 20140801, end: 20140808
  3. PROTIUM [Concomitant]
     Dosage: 40 MG
     Dates: start: 20090702, end: 20140815
  4. PARACETAMOL [Concomitant]
     Active Substance: ACETAMINOPHEN
     Indication: PAIN
     Dosage: 4 MG
     Dates: start: 20090108, end: 20140815
  5. GALFER [Concomitant]
     Active Substance: IRON
     Indication: ANAEMIA
     Dates: start: 20130410, end: 20140815
  6. LEXAPRO [Suspect]
     Active Substance: ESCITALOPRAM OXALATE
     Indication: DEPRESSION
     Dosage: 10 MG
     Route: 060
     Dates: start: 20140205, end: 20140809
  7. METOPROLOL [Concomitant]
     Active Substance: METOPROLOL
     Indication: ATRIAL FIBRILLATION
     Dosage: 50 MG
     Route: 048
     Dates: start: 20090108, end: 20140815
  8. CORDARONE [Concomitant]
     Active Substance: AMIODARONE HYDROCHLORIDE
     Indication: ATRIAL FIBRILLATION
     Dosage: 100 MG
     Route: 048
     Dates: start: 20090108, end: 20140815
  9. ZIMOVANE [Concomitant]
     Active Substance: ZOPICLONE
     Indication: SLEEP DISORDER
     Dosage: 3.75 MG
     Dates: start: 20091127, end: 20140815
  10. COZAAR [Concomitant]
     Active Substance: LOSARTAN POTASSIUM
     Indication: CARDIOVASCULAR DISORDER
     Dosage: 25 MG
     Dates: start: 20090108, end: 20140815
  11. LANOXIN PG [Concomitant]
     Indication: ATRIAL FIBRILLATION
     Dosage: 62.5 MCG
     Dates: start: 20090108, end: 20140815

REACTIONS (5)
  - Dysphagia [Fatal]
  - Sepsis [Fatal]
  - Gastrointestinal haemorrhage [Unknown]
  - Tachycardia [Unknown]
  - Pneumonia [Fatal]

NARRATIVE: CASE EVENT DATE: 201408
